FAERS Safety Report 4316054-7 (Version None)
Quarter: 2004Q1

REPORT INFORMATION
  Report Type: 
  Country: None (occurrence: None)
  Receive Date: 20040312
  Receipt Date: 20040207
  Transmission Date: 20041129
  Serious: Yes (Hospitalization)
  Sender: FDA-Public Use
  Company Number: PHFR2004GB00938

PATIENT
  Age: 27 Year
  Sex: Male

DRUGS (2)
  1. CLOZARIL [Suspect]
     Indication: SCHIZOPHRENIA
     Route: 048
     Dates: start: 20040122, end: 20040208
  2. VALPROIC ACID [Concomitant]
     Dosage: 1500 MG, QD
     Route: 048

REACTIONS (5)
  - C-REACTIVE PROTEIN INCREASED [None]
  - HAEMATURIA [None]
  - PROTEIN URINE PRESENT [None]
  - PYREXIA [None]
  - URINARY TRACT INFECTION [None]
